FAERS Safety Report 5795137-9 (Version None)
Quarter: 2008Q2

REPORT INFORMATION
  Report Type: 
  Country: None (occurrence: None)
  Receive Date: 20080630
  Receipt Date: 20080509
  Transmission Date: 20081010
  Serious: No
  Sender: FDA-Public Use
  Company Number: US-BRISTOL-MYERS SQUIBB COMPANY-14175814

PATIENT
  Age: 57 Year
  Sex: Female

DRUGS (3)
  1. ORENCIA [Suspect]
     Indication: RHEUMATOID ARTHRITIS
     Dosage: NEXT INFUSION ON 05JUN08
     Route: 042
  2. CELECOXIB [Concomitant]
  3. HYDROXYCHLOROQUINE SULFATE [Concomitant]

REACTIONS (2)
  - CUTANEOUS VASCULITIS [None]
  - SKIN EXFOLIATION [None]
